FAERS Safety Report 21941142 (Version 1)
Quarter: 2023Q1

REPORT INFORMATION
  Report Type: Report from Study
  Country: US (occurrence: US)
  Receive Date: 20230202
  Receipt Date: 20230202
  Transmission Date: 20230417
  Serious: No
  Sender: FDA-Public Use
  Company Number: US-EXELIXIS-CABO-22053363

PATIENT
  Sex: Male
  Weight: 84.984 kg

DRUGS (1)
  1. CABOMETYX [Suspect]
     Active Substance: CABOZANTINIB S-MALATE
     Indication: Renal cancer
     Dosage: 20 MG, QD
     Route: 048

REACTIONS (5)
  - Feeling abnormal [Recovered/Resolved]
  - Flatulence [Unknown]
  - Solar dermatitis [Unknown]
  - Dry skin [Unknown]
  - Diarrhoea [Unknown]
